FAERS Safety Report 19513920 (Version 1)
Quarter: 2021Q3

REPORT INFORMATION
  Report Type: Spontaneous
  Country: BG (occurrence: BG)
  Receive Date: 20210710
  Receipt Date: 20210710
  Transmission Date: 20211014
  Serious: Yes (Hospitalization, Other)
  Sender: FDA-Public Use
  Company Number: BG-LUPIN PHARMACEUTICALS INC.-2021-11631

PATIENT
  Age: 87 Year

DRUGS (4)
  1. TELMISARTAN AND AMLODIPINE [Suspect]
     Active Substance: AMLODIPINE BESYLATE\TELMISARTAN
     Indication: HYPERTENSION
     Dosage: UNK UNK, QD,80/5MG , QD, ADMINISTERED FOR 4 MONTHS
     Route: 065
  2. TELMISARTAN. [Suspect]
     Active Substance: TELMISARTAN
     Indication: HYPERTENSION
     Dosage: 80 MILLIGRAM, QD,ADMINISTERED FOR FOUR YEARS (DIFFERENT MANUFACTURER THAN EARLIER, NOT SPECIFIED)
     Route: 065
  3. TELMISARTAN. [Suspect]
     Active Substance: TELMISARTAN
     Dosage: 80 MILLIGRAM, QD,ADMINISTERED FOR FIVE AND A HALF YEARS
     Route: 065
  4. AMLODIPINE [Suspect]
     Active Substance: AMLODIPINE BESYLATE
     Indication: HYPERTENSION
     Dosage: 5 MILLIGRAM, QD,ADMINISTERED FOR 4MONTHS INITIALLY AND CONTINUE AT PRESENTATION.
     Route: 065

REACTIONS (1)
  - Metastatic malignant melanoma [Recovered/Resolved]
